FAERS Safety Report 8386702-3 (Version None)
Quarter: 2012Q2

REPORT INFORMATION
  Report Type: 
  Country: None (occurrence: None)
  Receive Date: 20120525
  Receipt Date: 20120515
  Transmission Date: 20120825
  Serious: Yes (Death)
  Sender: FDA-Public Use
  Company Number: US-MYLANLABS-2009S1016898

PATIENT
  Age: 45 Year
  Sex: Male
  Weight: 80 kg

DRUGS (6)
  1. FENTANYL-100 [Suspect]
     Indication: BACK PAIN
     Dosage: CHANGED Q2D
     Route: 062
     Dates: end: 20071003
  2. CYMBALTA [Concomitant]
  3. TESTIM [Concomitant]
     Indication: HYPOGONADISM
     Route: 061
  4. OXYCODONE HCL [Suspect]
     Indication: BACK PAIN
  5. LYRICA [Concomitant]
  6. ALPRAZOLAM [Concomitant]

REACTIONS (1)
  - TOXICITY TO VARIOUS AGENTS [None]
